FAERS Safety Report 7742993-0 (Version None)
Quarter: 2011Q3

REPORT INFORMATION
  Report Type: 
  Country: None (occurrence: None)
  Receive Date: 20110912
  Receipt Date: 20110830
  Transmission Date: 20111222
  Serious: Yes (Hospitalization, Other)
  Sender: FDA-Public Use
  Company Number: US-BAYER-201028589NA

PATIENT
  Age: 36 Year
  Sex: Female
  Weight: 86.168 kg

DRUGS (8)
  1. BUPROPION HCL [Concomitant]
     Indication: BIPOLAR DISORDER
     Dosage: 150 MG, UNK
     Dates: start: 20090518
  2. EFFEXOR [Concomitant]
     Indication: BIPOLAR DISORDER
     Dosage: UNK
     Route: 048
     Dates: start: 20030101, end: 20090101
  3. YAZ [Suspect]
     Dosage: UNK
     Dates: start: 20080301, end: 20090701
  4. GEODON [Concomitant]
     Indication: BIPOLAR DISORDER
     Dosage: UNK
     Route: 048
     Dates: start: 20070401, end: 20090301
  5. YAZ [Suspect]
     Indication: PREMENSTRUAL SYNDROME
     Dosage: UNK UNK, UNK
     Route: 048
     Dates: start: 20070101, end: 20070801
  6. ABILIFY [Concomitant]
     Indication: BIPOLAR DISORDER
     Dosage: 20 MG, UNK
     Route: 048
     Dates: start: 20090518
  7. YAZ [Suspect]
     Indication: MENSTRUATION IRREGULAR
     Dosage: UNK
     Dates: start: 20091101
  8. TRAZODONE HCL [Concomitant]
     Indication: BIPOLAR DISORDER
     Dosage: 100 MG, UNK
     Dates: start: 20090518

REACTIONS (5)
  - GALLBLADDER INJURY [None]
  - BILE DUCT STONE [None]
  - CHOLECYSTITIS CHRONIC [None]
  - CHOLECYSTITIS ACUTE [None]
  - CHOLELITHIASIS [None]
